FAERS Safety Report 9852841 (Version 1)
Quarter: 2014Q1

REPORT INFORMATION
  Report Type: Spontaneous
  Country: IT (occurrence: IT)
  Receive Date: 20140129
  Receipt Date: 20140129
  Transmission Date: 20141002
  Serious: Yes (Hospitalization)
  Sender: FDA-Public Use
  Company Number: IT-BAYER-2014-013613

PATIENT
  Sex: Female
  Weight: 1.27 kg

DRUGS (8)
  1. ACETYLSALICYLIC ACID({=100 MG) [Suspect]
     Route: 064
  2. ACETYLSALICYLIC ACID({=100 MG) [Suspect]
     Route: 064
  3. INSULIN [Concomitant]
     Indication: TYPE 1 DIABETES MELLITUS
     Route: 064
  4. INSULIN [Concomitant]
     Indication: TYPE 1 DIABETES MELLITUS
     Route: 064
  5. METHYLDOPA [Concomitant]
     Route: 064
  6. METHYLDOPA [Concomitant]
     Route: 064
  7. AMINO ACID [Concomitant]
     Route: 064
  8. AMINO ACID [Concomitant]
     Route: 064

REACTIONS (3)
  - Premature baby [Recovered/Resolved]
  - Low birth weight baby [Recovered/Resolved]
  - Foetal exposure timing unspecified [None]
